FAERS Safety Report 4681306-8 (Version None)
Quarter: 2005Q2

REPORT INFORMATION
  Report Type: 
  Country: None (occurrence: None)
  Receive Date: 20050601
  Receipt Date: 20050518
  Transmission Date: 20051028
  Serious: Yes (Other)
  Sender: FDA-Public Use
  Company Number: DEU-2005-0001442

PATIENT
  Age: 91 Year
  Sex: Female

DRUGS (2)
  1. HYDROMORPHONE HYDROCHLORIDE [Suspect]
     Indication: PERIOPERATIVE ANALGESIA
     Dosage: UNK, SEE TEXT, EPIDURAL
     Route: 008
  2. BUPIVACAINE [Suspect]
     Indication: PERIOPERATIVE ANALGESIA
     Dosage: UNK, SEE TEXT, EPIDURAL
     Route: 008

REACTIONS (5)
  - ANAESTHETIC COMPLICATION [None]
  - MASS [None]
  - NERVOUS SYSTEM DISORDER [None]
  - SPINAL CORD COMPRESSION [None]
  - SPINAL CORD DISORDER [None]
